FAERS Safety Report 16009250 (Version 4)
Quarter: 2019Q2

REPORT INFORMATION
  Report Type: Spontaneous
  Country: US (occurrence: US)
  Receive Date: 20190226
  Receipt Date: 20190617
  Transmission Date: 20190711
  Serious: No
  Sender: FDA-Public Use
  Company Number: US-ASTRAZENECA-2019SE24262

PATIENT
  Age: 95 Year
  Sex: Male
  Weight: 59 kg

DRUGS (1)
  1. SYMBICORT [Suspect]
     Active Substance: BUDESONIDE\FORMOTEROL FUMARATE DIHYDRATE
     Dosage: 160/4.5 MCG, 2 PUFFS, TWICE A DAY
     Route: 055

REACTIONS (6)
  - Intentional product misuse [Unknown]
  - Device issue [Unknown]
  - Insomnia [Unknown]
  - Product dose omission [Unknown]
  - Body height decreased [Unknown]
  - Weight decreased [Unknown]
